FAERS Safety Report 11894586 (Version 1)
Quarter: 2016Q1

REPORT INFORMATION
  Report Type: Spontaneous
  Country: US (occurrence: None)
  Receive Date: 20160106
  Receipt Date: 20160106
  Transmission Date: 20160526
  Serious: No
  Sender: FDA-Public Use
  Company Number: None

PATIENT
  Age: 90 Year
  Sex: Male
  Weight: 74.39 kg

DRUGS (10)
  1. ALLOPURINOL. [Concomitant]
     Active Substance: ALLOPURINOL
  2. BENAZEPRIL [Concomitant]
     Active Substance: BENAZEPRIL HYDROCHLORIDE
  3. HYDRO-WATERPILL [Concomitant]
  4. TAMSULOSIN HCL [Suspect]
     Active Substance: TAMSULOSIN
     Indication: URINARY RETENTION
     Dosage: 1 PILL
     Route: 048
     Dates: start: 20151209, end: 20151223
  5. FOLBEE PLUS [Concomitant]
  6. TAMSULOSIN HCL [Suspect]
     Active Substance: TAMSULOSIN
     Indication: PROSTATOMEGALY
     Dosage: 1 PILL
     Route: 048
     Dates: start: 20151209, end: 20151223
  7. AMLODIPINE [Concomitant]
     Active Substance: AMLODIPINE BESYLATE
  8. VITAMIN D2 [Concomitant]
     Active Substance: ERGOCALCIFEROL
  9. SERTRALINE [Concomitant]
     Active Substance: SERTRALINE HYDROCHLORIDE
  10. TAMSULOSIN HCL [Suspect]
     Active Substance: TAMSULOSIN
     Indication: CHRONIC KIDNEY DISEASE
     Dosage: 1 PILL
     Route: 048
     Dates: start: 20151209, end: 20151223

REACTIONS (3)
  - Dizziness [None]
  - Somnolence [None]
  - Heart rate increased [None]

NARRATIVE: CASE EVENT DATE: 20151209
